FAERS Safety Report 20378605 (Version 1)
Quarter: 2022Q1

REPORT INFORMATION
  Report Type: Report from Study
  Country: ZA (occurrence: ZA)
  Receive Date: 20220126
  Receipt Date: 20220126
  Transmission Date: 20220423
  Serious: Yes (Death, Other)
  Sender: FDA-Public Use
  Company Number: ZA-NOVARTISPH-NVSC2021ZA235743

PATIENT
  Sex: Female

DRUGS (1)
  1. RIBOCICLIB [Suspect]
     Active Substance: RIBOCICLIB
     Indication: Breast cancer metastatic
     Dosage: 600 MG, QD
     Route: 048
     Dates: start: 20210601

REACTIONS (6)
  - Renal failure [Fatal]
  - Hepatic failure [Fatal]
  - Sepsis [Unknown]
  - Tumour marker increased [Unknown]
  - Rheumatic disorder [Unknown]
  - Pain [Unknown]
